FAERS Safety Report 25029281 (Version 1)
Quarter: 2025Q1

REPORT INFORMATION
  Report Type: Spontaneous
  Country: US (occurrence: US)
  Receive Date: 20250303
  Receipt Date: 20250303
  Transmission Date: 20250409
  Serious: No
  Sender: BRISTOL-MYERS SQUIBB COMPANY
  Company Number: US-BRISTOL-MYERS SQUIBB COMPANY-2025-030851

PATIENT
  Age: 77 Year
  Sex: Female

DRUGS (1)
  1. THALOMID [Suspect]
     Active Substance: THALIDOMIDE
     Indication: Lichen planus
     Dosage: TAKE 1 CAPSULE BY MOUTH NIGHTLY FOR 28 DAYS
     Route: 048

REACTIONS (2)
  - Adverse event [Unknown]
  - Off label use [Unknown]
